FAERS Safety Report 24937366 (Version 2)
Quarter: 2025Q2

REPORT INFORMATION
  Report Type: Report from Study
  Country: GB (occurrence: GB)
  Receive Date: 20250206
  Receipt Date: 20250506
  Transmission Date: 20250716
  Serious: Yes (Hospitalization, Other)
  Sender: BAXTER
  Company Number: GB-BAXTER-2025BAX009790

PATIENT
  Sex: Female

DRUGS (7)
  1. SODIUM CHLORIDE [Suspect]
     Active Substance: SODIUM CHLORIDE
     Indication: Parenteral nutrition
     Route: 065
  2. ANHYDROUS DEXTROSE [Suspect]
     Active Substance: ANHYDROUS DEXTROSE
     Route: 065
     Dates: end: 20250424
  3. MAGNESIUM SULFATE [Suspect]
     Active Substance: MAGNESIUM SULFATE
     Route: 065
     Dates: end: 20250424
  4. POTASSIUM CHLORIDE [Suspect]
     Active Substance: POTASSIUM CHLORIDE
     Route: 065
     Dates: end: 20250424
  5. SODIUM CHLORIDE [Suspect]
     Active Substance: SODIUM CHLORIDE
     Route: 065
     Dates: end: 20250424
  6. WATER FOR INJECTION [Suspect]
     Active Substance: WATER
     Route: 065
     Dates: end: 20250424
  7. UNSPECIFIED INGREDIENT [Suspect]
     Active Substance: UNSPECIFIED INGREDIENT
     Route: 065

REACTIONS (13)
  - Depressed level of consciousness [Unknown]
  - Malaise [Recovering/Resolving]
  - Fatigue [Unknown]
  - Cough [Unknown]
  - Speech disorder [Unknown]
  - Lower respiratory tract infection [Recovering/Resolving]
  - Urinary tract infection [Unknown]
  - Nasopharyngitis [Recovering/Resolving]
  - Chills [Recovering/Resolving]
  - Body temperature increased [Recovering/Resolving]
  - Radial pulse abnormal [Unknown]
  - Pallor [Unknown]
  - Tremor [Recovering/Resolving]
